FAERS Safety Report 9861460 (Version 3)
Quarter: 2014Q1

REPORT INFORMATION
  Report Type: Spontaneous
  Country: US (occurrence: US)
  Receive Date: 20140203
  Receipt Date: 20140311
  Transmission Date: 20141002
  Serious: Yes (Death, Hospitalization)
  Sender: FDA-Public Use
  Company Number: US-BIOGENIDEC-2014BI008150

PATIENT
  Age: 60 Year
  Sex: Female

DRUGS (24)
  1. TYSABRI [Suspect]
     Indication: MULTIPLE SCLEROSIS
     Route: 042
     Dates: start: 20080624, end: 20131108
  2. TYSABRI [Suspect]
     Indication: MULTIPLE SCLEROSIS
     Route: 042
     Dates: start: 20080601, end: 20131101
  3. AVONEX [Concomitant]
     Indication: MULTIPLE SCLEROSIS
     Route: 030
     Dates: start: 20080601
  4. AVONEX [Concomitant]
     Indication: MULTIPLE SCLEROSIS
     Route: 030
  5. AVONEX [Concomitant]
     Indication: MULTIPLE SCLEROSIS
     Route: 030
     Dates: start: 20071001, end: 20080605
  6. SIMVASTATIN [Concomitant]
  7. NEXIUM [Concomitant]
  8. METOPROLOL TARTRATE [Concomitant]
  9. FAMOTIDINE [Concomitant]
  10. DESIPRAMINE [Concomitant]
     Route: 048
  11. RIVAROXABAN [Concomitant]
  12. AMLODIPINE [Concomitant]
     Route: 048
  13. LISINOPRIL [Concomitant]
     Route: 048
  14. ISOSORBIDE MONONITRATE SR [Concomitant]
     Route: 048
  15. PREMARIN [Concomitant]
     Route: 048
  16. GABAPENTIN [Concomitant]
     Route: 048
  17. TIZANIDINE [Concomitant]
     Route: 048
  18. SYNTHROID [Concomitant]
     Route: 048
  19. TOPIRAMATE [Concomitant]
     Route: 048
  20. NIACIN [Concomitant]
     Route: 048
  21. ONDANSETRON [Concomitant]
     Indication: ANXIETY
  22. OMEGA-3 FATTY ACIDS [Concomitant]
  23. VITAMIN D3 [Concomitant]
  24. POTASSIUM CITRATE [Concomitant]
     Route: 048

REACTIONS (3)
  - Progressive multifocal leukoencephalopathy [Fatal]
  - Candida infection [Unknown]
  - Hyperglycaemia [Unknown]
